FAERS Safety Report 25245917 (Version 2)
Quarter: 2025Q2

REPORT INFORMATION
  Report Type: Spontaneous
  Country: US (occurrence: US)
  Receive Date: 20250428
  Receipt Date: 20250623
  Transmission Date: 20250716
  Serious: Yes (Other)
  Sender: ORGANON
  Company Number: US-ORGANON-O2504USA002707

PATIENT
  Age: 57 Year
  Sex: Female
  Weight: 54.88 kg

DRUGS (1)
  1. FOSAMAX [Suspect]
     Active Substance: ALENDRONATE SODIUM
     Indication: Osteoporosis
     Dosage: 1 TABLET ONCE A WEEK, 70MG
     Route: 048
     Dates: start: 202412, end: 202503

REACTIONS (11)
  - Gastric ulcer [Recovered/Resolved]
  - Nausea [Recovered/Resolved]
  - Diarrhoea [Recovered/Resolved]
  - Abdominal pain upper [Recovered/Resolved]
  - Pain in jaw [Recovered/Resolved]
  - Alopecia [Not Recovered/Not Resolved]
  - Balance disorder [Unknown]
  - Reflexes abnormal [Unknown]
  - Salivary hypersecretion [Recovered/Resolved]
  - Asthenia [Unknown]
  - Drug hypersensitivity [Unknown]

NARRATIVE: CASE EVENT DATE: 20241201
